FAERS Safety Report 20354830 (Version 1)
Quarter: 2022Q1

REPORT INFORMATION
  Report Type: Report from Study
  Country: ES (occurrence: ES)
  Receive Date: 20220120
  Receipt Date: 20220120
  Transmission Date: 20220423
  Serious: Yes (Hospitalization)
  Sender: FDA-Public Use
  Company Number: None

PATIENT
  Age: 47 Year
  Sex: Male

DRUGS (2)
  1. AMITRIPTYLINE [Suspect]
     Active Substance: AMITRIPTYLINE
     Dates: start: 20211102, end: 20211102
  2. ENALAPRIL [Suspect]
     Active Substance: ENALAPRIL
     Dosage: 20 / 12.5 MG TABLETS EFG
     Route: 048
     Dates: start: 20211102, end: 20211102

REACTIONS (2)
  - Depressed level of consciousness [Recovering/Resolving]
  - Suicide attempt [Unknown]

NARRATIVE: CASE EVENT DATE: 20211102
